FAERS Safety Report 7307364-X (Version None)
Quarter: 2011Q1

REPORT INFORMATION
  Report Type: 
  Country: None (occurrence: None)
  Receive Date: 20110209
  Receipt Date: 20110202
  Transmission Date: 20110831
  Serious: Yes (Hospitalization)
  Sender: FDA-Public Use
  Company Number: TRP_07541_2011

PATIENT
  Sex: Male

DRUGS (3)
  1. RIBASPHERE [Suspect]
     Indication: HEPATITIS C
     Dates: start: 20101110
  2. VICODIN [Concomitant]
  3. PEG-INTRON [Suspect]
     Indication: HEPATITIS C
     Dates: start: 20101110

REACTIONS (12)
  - CONFUSIONAL STATE [None]
  - HEADACHE [None]
  - ANXIETY [None]
  - NAUSEA [None]
  - WEIGHT DECREASED [None]
  - INFLUENZA LIKE ILLNESS [None]
  - DYSGEUSIA [None]
  - DRUG DOSE OMISSION [None]
  - MALAISE [None]
  - PAROSMIA [None]
  - APHASIA [None]
  - DYSPNOEA [None]
